FAERS Safety Report 9266721 (Version 2)
Quarter: 2013Q2

REPORT INFORMATION
  Report Type: Spontaneous
  Country: JP (occurrence: JP)
  Receive Date: 20130502
  Receipt Date: 20130530
  Transmission Date: 20140414
  Serious: Yes (Other)
  Sender: FDA-Public Use
  Company Number: JP-PFIZER INC-2013134473

PATIENT
  Age: 6 Decade
  Sex: Female

DRUGS (5)
  1. CELECOX [Suspect]
     Dosage: 200 MG, DAILY
     Route: 048
  2. MYSLEE [Suspect]
     Indication: INSOMNIA
     Dosage: 5 MG, UID/QD
     Route: 048
  3. MYSLEE [Suspect]
     Dosage: 10 MG, UID/QD
     Route: 048
  4. AMLODIPINE BESILATE [Concomitant]
     Dosage: UNK
     Route: 048
  5. REBAMIPIDE [Concomitant]
     Dosage: UNK
     Route: 048

REACTIONS (1)
  - Anterograde amnesia [Recovered/Resolved]
